FAERS Safety Report 4516317-6 (Version None)
Quarter: 2004Q4

REPORT INFORMATION
  Report Type: 
  Country: None (occurrence: None)
  Receive Date: 20041202
  Receipt Date: 20041026
  Transmission Date: 20050328
  Serious: Yes (Disabling)
  Sender: FDA-Public Use
  Company Number: PHRM2004FR03345

PATIENT
  Sex: Male
  Weight: 65 kg

DRUGS (1)
  1. TEGRETOL [Suspect]
     Indication: EPILEPSY
     Dosage: 1200 MG/DAY
     Route: 048

REACTIONS (2)
  - INFERTILITY [None]
  - SPERMATOZOA PROGRESSIVE MOTILITY ABNORMAL [None]
